FAERS Safety Report 10375556 (Version 1)
Quarter: 2014Q3

REPORT INFORMATION
  Report Type: Spontaneous
  Country: US (occurrence: None)
  Receive Date: 20140804
  Receipt Date: 20140804
  Transmission Date: 20150326
  Serious: Yes (Hospitalization)
  Sender: FDA-Public Use
  Company Number: 1224850-2014-00005

PATIENT
  Age: 44 Year
  Sex: Female

DRUGS (32)
  1. DELFLEX [Concomitant]
     Active Substance: CALCIUM CHLORIDE\DEXTROSE MONOHYDRATE\MAGNESIUM CHLORIDE\SODIUM CHLORIDE\SODIUM LACTATE
  2. LISPRO [Concomitant]
     Active Substance: INSULIN LISPRO
  3. SYMBICORT [Concomitant]
     Active Substance: BUDESONIDE\FORMOTEROL FUMARATE DIHYDRATE
  4. TOPROL XL [Concomitant]
     Active Substance: METOPROLOL SUCCINATE
  5. PREZISTA [Concomitant]
     Active Substance: DARUNAVIR ETHANOLATE
  6. DIPHENHYDRAMINE [Concomitant]
     Active Substance: DIPHENHYDRAMINE
  7. FLONASE [Concomitant]
     Active Substance: FLUTICASONE PROPIONATE
  8. PRILOSEC [Concomitant]
     Active Substance: OMEPRAZOLE MAGNESIUM
  9. LIBERTY CYCLER AND CASSETTE [Concomitant]
  10. CLOTRIMAZOLE AND BETAMETHASONE DIPROPIONATE [Concomitant]
     Active Substance: BETAMETHASONE\BETAMETHASONE DIPROPIONATE\CLOTRIMAZOLE
  11. DIPHENOXYLATE-ATROPINE [Concomitant]
  12. NORVIR [Concomitant]
     Active Substance: RITONAVIR
  13. DETERMIR [Concomitant]
  14. CHANTIX [Concomitant]
     Active Substance: VARENICLINE TARTRATE
  15. NPH INSULIN [Concomitant]
     Active Substance: INSULIN BEEF
  16. CELEXA [Concomitant]
     Active Substance: CITALOPRAM HYDROBROMIDE
  17. ADVAIR KISKUS [Concomitant]
  18. AMITRIPTYLLINE [Concomitant]
     Active Substance: AMITRIPTYLINE
  19. TRUVADA [Concomitant]
     Active Substance: EMTRICITABINE\TENOFOVIR DISOPROXIL FUMARATE
  20. ASPIR LOW [Concomitant]
     Active Substance: ASPIRIN
  21. ATORVASTATIN [Concomitant]
     Active Substance: ATORVASTATIN
  22. DOCUSATE SODIUM. [Concomitant]
     Active Substance: DOCUSATE SODIUM
  23. CLARITIN [Concomitant]
     Active Substance: LORATADINE
  24. NEPRO/CARB STEADY [Concomitant]
  25. PHOSLO [Suspect]
     Active Substance: CALCIUM ACETATE
     Indication: HYPOPHOSPHATAEMIA
  26. REMERON [Concomitant]
     Active Substance: MIRTAZAPINE
  27. CITALOPRAM [Concomitant]
     Active Substance: CITALOPRAM HYDROBROMIDE
  28. TRAMADOL [Concomitant]
     Active Substance: TRAMADOL
  29. CALCIUM-VITAMIN D [Concomitant]
  30. CHOLECALCIFEROL [Concomitant]
     Active Substance: CHOLECALCIFEROL
  31. CLOBETASOL [Concomitant]
     Active Substance: CLOBETASOL
  32. VICODIN [Concomitant]
     Active Substance: ACETAMINOPHEN\HYDROCODONE BITARTRATE

REACTIONS (5)
  - Product contamination [None]
  - Bacteraemia [None]
  - Escherichia test positive [None]
  - Peritonitis [None]
  - Peritoneal cloudy effluent [None]

NARRATIVE: CASE EVENT DATE: 20140426
